APPROVED DRUG PRODUCT: GLEEVEC
Active Ingredient: IMATINIB MESYLATE
Strength: EQ 100MG BASE
Dosage Form/Route: TABLET;ORAL
Application: N021588 | Product #001 | TE Code: AB
Applicant: NOVARTIS PHARMACEUTICALS CORP
Approved: Apr 18, 2003 | RLD: Yes | RS: No | Type: RX